FAERS Safety Report 20547036 (Version 9)
Quarter: 2023Q4

REPORT INFORMATION
  Report Type: Spontaneous
  Country: US (occurrence: US)
  Receive Date: 20220303
  Receipt Date: 20231020
  Transmission Date: 20240110
  Serious: Yes (Death, Hospitalization)
  Sender: FDA-Public Use
  Company Number: US-PFIZER INC-202200317115

PATIENT
  Age: 79 Year
  Sex: Female
  Weight: 38.7 kg

DRUGS (4)
  1. BOSULIF [Suspect]
     Active Substance: BOSUTINIB MONOHYDRATE
     Indication: Chronic myeloid leukaemia
     Dosage: 500 MG
  2. BOSULIF [Suspect]
     Active Substance: BOSUTINIB MONOHYDRATE
     Dosage: WITH FOOD
     Route: 048
  3. BOSULIF [Suspect]
     Active Substance: BOSUTINIB MONOHYDRATE
     Dosage: 100 MG
  4. BOSULIF [Suspect]
     Active Substance: BOSUTINIB MONOHYDRATE
     Dosage: WITH FOOD, SWALLOW WHOLE
     Route: 048
     Dates: start: 20221221

REACTIONS (6)
  - Death [Fatal]
  - Heart rate increased [Unknown]
  - Dyspnoea [Recovering/Resolving]
  - Atrial fibrillation [Unknown]
  - Oedema [Unknown]
  - Lung disorder [Unknown]

NARRATIVE: CASE EVENT DATE: 20230901
